FAERS Safety Report 11696039 (Version 1)
Quarter: 2015Q4

REPORT INFORMATION
  Report Type: Spontaneous
  Country: GB (occurrence: GB)
  Receive Date: 20151104
  Receipt Date: 20151104
  Transmission Date: 20160304
  Serious: Yes (Other)
  Sender: FDA-Public Use
  Company Number: GB-WATSON-2015-20666

PATIENT
  Age: 75 Year
  Sex: Female
  Weight: 73.93 kg

DRUGS (1)
  1. TRIMETHOPRIM (UNKNOWN) [Suspect]
     Active Substance: TRIMETHOPRIM
     Indication: URINARY TRACT INFECTION
     Dosage: 200 MG, UNKNOWN
     Route: 048

REACTIONS (4)
  - Colitis [Not Recovered/Not Resolved]
  - Dyspepsia [Recovering/Resolving]
  - Abdominal pain [Recovering/Resolving]
  - Local swelling [Recovering/Resolving]

NARRATIVE: CASE EVENT DATE: 20150909
